FAERS Safety Report 4816732-7 (Version None)
Quarter: 2005Q4

REPORT INFORMATION
  Report Type: 
  Country: None (occurrence: None)
  Receive Date: 20051028
  Receipt Date: 20051017
  Transmission Date: 20060501
  Serious: Yes (Other)
  Sender: FDA-Public Use
  Company Number: DSA_70708_2005

PATIENT
  Age: 31 Year
  Sex: Female

DRUGS (3)
  1. DARVOCET-N 100 [Suspect]
     Indication: PROCEDURAL PAIN
     Dosage: TAB QDAY PO
     Route: 048
     Dates: start: 20050831, end: 20050902
  2. ATIVAN [Suspect]
     Indication: ANXIETY
     Dosage: 1 TAB ONCE PO
     Route: 048
     Dates: start: 20050904, end: 20050904
  3. FRAGMIN [Concomitant]

REACTIONS (15)
  - AGITATION [None]
  - ANOREXIA [None]
  - BLOOD POTASSIUM DECREASED [None]
  - CONFUSIONAL STATE [None]
  - DECREASED APPETITE [None]
  - FEELING ABNORMAL [None]
  - HYPOAESTHESIA [None]
  - INSOMNIA [None]
  - LYMPHOCYTE COUNT DECREASED [None]
  - MENTAL DISORDER [None]
  - PITUITARY TUMOUR [None]
  - TREMOR [None]
  - VERTIGO [None]
  - VISION BLURRED [None]
  - WEIGHT DECREASED [None]
